FAERS Safety Report 12232144 (Version 1)
Quarter: 2016Q2

REPORT INFORMATION
  Report Type: Spontaneous
  Country: US (occurrence: US)
  Receive Date: 20160401
  Receipt Date: 20160401
  Transmission Date: 20160815
  Serious: Yes (Other)
  Sender: FDA-Public Use
  Company Number: US-BAYER-2016-057191

PATIENT
  Age: 73 Year
  Sex: Female
  Weight: 61.68 kg

DRUGS (2)
  1. BAYER LOW DOSE [Suspect]
     Active Substance: ASPIRIN
     Indication: PROPHYLAXIS
     Dosage: 1 DF, QD
     Route: 048
     Dates: start: 20151109
  2. BAYER LOW DOSE [Suspect]
     Active Substance: ASPIRIN
     Indication: COAGULATION TIME PROLONGED

REACTIONS (4)
  - Aortic valve replacement [None]
  - Sinus disorder [None]
  - Product use issue [None]
  - Dyspepsia [None]

NARRATIVE: CASE EVENT DATE: 20151120
